FAERS Safety Report 9301215 (Version 4)
Quarter: 2013Q3

REPORT INFORMATION
  Report Type: Spontaneous
  Country: US (occurrence: US)
  Receive Date: 20130521
  Receipt Date: 20130701
  Transmission Date: 20140515
  Serious: Yes (Other)
  Sender: FDA-Public Use
  Company Number: US-PFIZER INC-2013155962

PATIENT
  Age: 75 Year
  Sex: Female
  Weight: 53.06 kg

DRUGS (8)
  1. SUTENT [Suspect]
     Indication: RENAL CANCER
     Dosage: 37.5 MG (3 CAPSULES OF 12.5 MG), 1X/DAY
     Route: 048
     Dates: end: 20130407
  2. SUTENT [Suspect]
     Dosage: 37.5 MG, UNK
     Route: 048
     Dates: start: 20130517
  3. SUTENT [Suspect]
     Dosage: 37.5 MG (3 CAPSULES OF 12.5 MG), 1X/DAY
     Route: 048
     Dates: start: 20130521, end: 20130610
  4. LISINOPRIL [Concomitant]
     Dosage: 10 MG, 1X/DAY
     Route: 048
  5. PRAVASTATIN [Concomitant]
     Dosage: UNK
  6. METOPROLOL [Concomitant]
     Dosage: UNK
  7. OMEPRAZOLE [Concomitant]
     Dosage: UNK
  8. DILANTIN [Concomitant]
     Dosage: UNK

REACTIONS (4)
  - Hypertension [Unknown]
  - Alopecia [Not Recovered/Not Resolved]
  - Alopecia [Not Recovered/Not Resolved]
  - Chromaturia [Not Recovered/Not Resolved]
